FAERS Safety Report 11849053 (Version 1)
Quarter: 2015Q4

REPORT INFORMATION
  Report Type: Spontaneous
  Country: PT (occurrence: PT)
  Receive Date: 20151218
  Receipt Date: 20151218
  Transmission Date: 20160305
  Serious: Yes (Other)
  Sender: FDA-Public Use
  Company Number: PT-IROKO PHARMACEUTICALS LLC-PT-I09001-15-00203

PATIENT
  Age: 44 Year
  Sex: Female
  Weight: 55 kg

DRUGS (1)
  1. INDOCIN [Suspect]
     Active Substance: INDOMETHACIN\INDOMETHACIN SODIUM
     Indication: TENDONITIS
     Route: 048
     Dates: start: 20141126, end: 20141204

REACTIONS (5)
  - Psychomotor hyperactivity [Recovered/Resolved]
  - Confusional state [Recovered/Resolved]
  - Depersonalisation [Recovered/Resolved]
  - Apparent death [Recovered/Resolved]
  - Anxiety [Recovered/Resolved]

NARRATIVE: CASE EVENT DATE: 20141126
